FAERS Safety Report 5746373-9 (Version None)
Quarter: 2008Q2

REPORT INFORMATION
  Report Type: 
  Country: None (occurrence: None)
  Receive Date: 20080520
  Receipt Date: 20080520
  Transmission Date: 20081010
  Serious: Yes (Life-Threatening)
  Sender: FDA-Public Use
  Company Number: None

PATIENT
  Age: 56 Year
  Sex: Male
  Weight: 97.5234 kg

DRUGS (1)
  1. DIGOXIN      .25   DIGITEK [Suspect]
     Indication: CARDIAC DISORDER
     Dosage: .25 1/D

REACTIONS (2)
  - DIZZINESS [None]
  - IMPAIRED DRIVING ABILITY [None]
